FAERS Safety Report 9274048 (Version 3)
Quarter: 2013Q3

REPORT INFORMATION
  Report Type: Spontaneous
  Country: US (occurrence: US)
  Receive Date: 20130506
  Receipt Date: 20130708
  Transmission Date: 20140515
  Serious: No
  Sender: FDA-Public Use
  Company Number: US-AMGEN-USASP2013030274

PATIENT
  Age: 62 Year
  Sex: Female
  Weight: 81.63 kg

DRUGS (2)
  1. ENBREL [Suspect]
     Indication: PUSTULAR PSORIASIS
     Dosage: 50 MG, 2 TIMES/WK
     Dates: start: 20130417
  2. ENBREL [Suspect]
     Indication: PSORIASIS

REACTIONS (11)
  - Skin plaque [Not Recovered/Not Resolved]
  - Onychomadesis [Recovered/Resolved]
  - Injection site bruising [Not Recovered/Not Resolved]
  - Pustular psoriasis [Recovered/Resolved]
  - Injection site erythema [Not Recovered/Not Resolved]
  - Injection site warmth [Not Recovered/Not Resolved]
  - Injection site pruritus [Not Recovered/Not Resolved]
  - Injection site discolouration [Not Recovered/Not Resolved]
  - Injection site pain [Not Recovered/Not Resolved]
  - Psoriasis [Not Recovered/Not Resolved]
  - Injection site swelling [Not Recovered/Not Resolved]
